FAERS Safety Report 16976671 (Version 3)
Quarter: 2019Q4

REPORT INFORMATION
  Report Type: Report from Study
  Country: CA (occurrence: CA)
  Receive Date: 20191030
  Receipt Date: 20191218
  Transmission Date: 20200122
  Serious: Yes (Hospitalization)
  Sender: FDA-Public Use
  Company Number: CA-NALPROPION PHARMACEUTICALS INC.-2019-008386

PATIENT

DRUGS (9)
  1. CONTRAVE [Suspect]
     Active Substance: BUPROPION HYDROCHLORIDE\NALTREXONE HYDROCHLORIDE
     Dosage: STARTED APPROX. 01/JUN/2019 TO APPROX. 30/JUN/2019
     Route: 048
     Dates: start: 201906, end: 201906
  2. CONTRAVE [Suspect]
     Active Substance: BUPROPION HYDROCHLORIDE\NALTREXONE HYDROCHLORIDE
     Dosage: STARTED APPROX. 01/DEC/2019
     Route: 048
     Dates: start: 2019
  3. CONTRAVE [Suspect]
     Active Substance: BUPROPION HYDROCHLORIDE\NALTREXONE HYDROCHLORIDE
     Indication: WEIGHT CONTROL
     Dosage: TILL APPROXIMATELY 31/MAY/2019
     Route: 048
     Dates: start: 20190430, end: 201905
  4. CONTRAVE [Suspect]
     Active Substance: BUPROPION HYDROCHLORIDE\NALTREXONE HYDROCHLORIDE
     Dosage: STARTED APPROX. 20/OCT/2019 TO APPROX. 20/NOV/2019
     Route: 048
     Dates: start: 201910, end: 201911
  5. ROSUVASTATIN. [Concomitant]
     Active Substance: ROSUVASTATIN
     Indication: HYPERCHOLESTEROLAEMIA
     Dosage: GUESS JAN/2012 BECAUSE SHE HAD BEEN ON IT FOR SEVERAL YEARS
     Route: 048
     Dates: start: 201201
  6. CONTRAVE [Suspect]
     Active Substance: BUPROPION HYDROCHLORIDE\NALTREXONE HYDROCHLORIDE
     Dosage: 2 DOSAGE FORMS, 2 IN 1 D
     Route: 048
     Dates: start: 20190826, end: 20190921
  7. CONTRAVE [Suspect]
     Active Substance: BUPROPION HYDROCHLORIDE\NALTREXONE HYDROCHLORIDE
     Dosage: STARTED APPROX. 21/NOV/2019 TO APPROX. 30/NOV/2019
     Route: 048
     Dates: start: 201911, end: 2019
  8. ASA [Concomitant]
     Active Substance: ASPIRIN
     Indication: PRODUCT USED FOR UNKNOWN INDICATION
     Dosage: 1 IN 1 D
     Route: 048
  9. CONTRAVE [Suspect]
     Active Substance: BUPROPION HYDROCHLORIDE\NALTREXONE HYDROCHLORIDE
     Dosage: STARTED APPROX. 01/JUL/2019 TO APPROX. 25/AUG/2019
     Route: 048
     Dates: start: 201907, end: 201908

REACTIONS (6)
  - Pancreatitis [Unknown]
  - Product prescribing error [Unknown]
  - Treatment noncompliance [Unknown]
  - Bile duct obstruction [Unknown]
  - Drug titration error [Unknown]
  - Patient dissatisfaction with treatment [Unknown]

NARRATIVE: CASE EVENT DATE: 2019
